FAERS Safety Report 8570692-4 (Version None)
Quarter: 2012Q3

REPORT INFORMATION
  Report Type: 
  Country: None (occurrence: None)
  Receive Date: 20120805
  Receipt Date: 20120711
  Transmission Date: 20120928
  Serious: No
  Sender: FDA-Public Use
  Company Number: US-009507513-2012SP036497

PATIENT

DRUGS (8)
  1. CLARITIN REDITABS [Suspect]
     Indication: SEASONAL ALLERGY
     Dosage: 10 MG, QD
     Route: 048
     Dates: start: 20120501, end: 20120601
  2. CLARITIN REDITABS [Suspect]
     Indication: MYCOTIC ALLERGY
  3. CALCIUM (UNSPECIFIED) [Concomitant]
     Indication: PRODUCT USED FOR UNKNOWN INDICATION
     Dosage: UNK, UNKNOWN
  4. SYNTHROID [Concomitant]
     Indication: THYROID DISORDER
     Dosage: UNK, UNKNOWN
  5. CHOLECALCIFEROL [Concomitant]
     Indication: VITAMIN D DEFICIENCY
     Dosage: 2000 IU, UNK
  6. CALCITAB [Concomitant]
     Indication: PRODUCT USED FOR UNKNOWN INDICATION
     Dosage: 1200 MG, UNK
  7. ICAPS [Concomitant]
     Indication: MACULAR DEGENERATION
     Dosage: UNK, UNKNOWN
  8. CLARITIN REDITABS [Suspect]
     Indication: HYPERSENSITIVITY

REACTIONS (1)
  - THERAPEUTIC PRODUCT INEFFECTIVE [None]
